FAERS Safety Report 7132490-8 (Version None)
Quarter: 2010Q4

REPORT INFORMATION
  Report Type: 
  Country: None (occurrence: None)
  Receive Date: 20101130
  Receipt Date: 20101130
  Transmission Date: 20110411
  Serious: Yes (Life-Threatening)
  Sender: FDA-Public Use
  Company Number: None

PATIENT
  Age: 57 Year
  Sex: Male
  Weight: 79.3795 kg

DRUGS (4)
  1. DARVOCET [Suspect]
     Indication: ARTHRALGIA
     Dates: start: 20100901, end: 20101020
  2. DARVOCET [Suspect]
     Indication: KNEE OPERATION
     Dates: start: 20100901, end: 20101020
  3. DARVOCET [Suspect]
     Indication: ARTHRALGIA
     Dates: start: 20101020, end: 20101029
  4. DARVOCET [Suspect]
     Indication: KNEE OPERATION
     Dates: start: 20101020, end: 20101029

REACTIONS (2)
  - CHEST PAIN [None]
  - HEART RATE IRREGULAR [None]
